FAERS Safety Report 5259256-8 (Version None)
Quarter: 2007Q1

REPORT INFORMATION
  Report Type: 
  Country: None (occurrence: None)
  Receive Date: 20070308
  Receipt Date: 20070227
  Transmission Date: 20070707
  Serious: Yes (Hospitalization, Other)
  Sender: FDA-Public Use
  Company Number: 2007AP01363

PATIENT
  Age: 40 Year
  Sex: Female

DRUGS (3)
  1. IRESSA [Suspect]
     Indication: LUNG ADENOCARCINOMA
     Route: 048
  2. PACLITAXEL [Concomitant]
     Dosage: 2 COURSES
  3. CARBOPLATIN [Concomitant]
     Dosage: 2 COURSES

REACTIONS (2)
  - DIARRHOEA [None]
  - LUNG DISORDER [None]
